FAERS Safety Report 23858440 (Version 1)
Quarter: 2024Q2

REPORT INFORMATION
  Report Type: Spontaneous
  Country: US (occurrence: US)
  Receive Date: 20240515
  Receipt Date: 20240515
  Transmission Date: 20240715
  Serious: Yes (Other)
  Sender: FDA-Public Use
  Company Number: US-AMGEN-USASP2024091685

PATIENT
  Age: 20 Year
  Sex: Female

DRUGS (5)
  1. INFLIXIMAB [Suspect]
     Active Substance: INFLIXIMAB
     Indication: Neurosarcoidosis
     Dosage: 5 MILLIGRAM/KILOGRAM, Q6WK
     Route: 065
  2. INFLIXIMAB [Suspect]
     Active Substance: INFLIXIMAB
     Dosage: 8 MILLIGRAM/KILOGRAM, Q4WK
     Route: 065
  3. PREDNISONE [Concomitant]
     Active Substance: PREDNISONE
     Indication: Neurosarcoidosis
     Dosage: 30 MILLIGRAM, QD
     Route: 065
  4. PREDNISONE [Concomitant]
     Active Substance: PREDNISONE
     Dosage: 60 MILLIGRAM, QD
     Route: 065
  5. METHOTREXATE [Concomitant]
     Active Substance: METHOTREXATE
     Indication: Neurosarcoidosis
     Dosage: 10 MILLIGRAM, QWK
     Route: 065

REACTIONS (4)
  - Germ cell cancer [Unknown]
  - Drug effective for unapproved indication [Unknown]
  - Hypopituitarism [Unknown]
  - Off label use [Unknown]
